FAERS Safety Report 4693726-6 (Version None)
Quarter: 2005Q2

REPORT INFORMATION
  Report Type: 
  Country: None (occurrence: None)
  Receive Date: 20050615
  Receipt Date: 20050601
  Transmission Date: 20051028
  Serious: Yes (Hospitalization, Other)
  Sender: FDA-Public Use
  Company Number: USA050699442

PATIENT
  Age: 66 Year
  Sex: Male
  Weight: 58 kg

DRUGS (6)
  1. FORTEO [Suspect]
     Indication: OSTEOPOROSIS
     Dosage: 20 UG/1 DAY
     Dates: start: 20040101
  2. FORTEO [Suspect]
     Indication: SPINAL DISORDER
     Dosage: 20 UG/1 DAY
     Dates: start: 20040101
  3. HYDROCHLOROTHIAZIDE [Concomitant]
  4. MIRAPEX (PRAMIPEXOLE DIHYDROCHORIDE) [Concomitant]
  5. AVANDIA [Concomitant]
  6. AMARYL [Concomitant]

REACTIONS (4)
  - DIABETES MELLITUS [None]
  - LYMPHOMA [None]
  - PANCREATIC CARCINOMA [None]
  - WEIGHT DECREASED [None]
